FAERS Safety Report 6932763-5 (Version None)
Quarter: 2010Q3

REPORT INFORMATION
  Report Type: 
  Country: None (occurrence: None)
  Receive Date: 20100819
  Receipt Date: 20100808
  Transmission Date: 20110219
  Serious: Yes (Hospitalization, Other)
  Sender: FDA-Public Use
  Company Number: US-WYE-H16826010

PATIENT
  Sex: Female

DRUGS (3)
  1. EFFEXOR XR [Suspect]
     Indication: MENOPAUSE
     Dates: start: 20070101, end: 20091201
  2. EFFEXOR XR [Suspect]
     Indication: HOT FLUSH
     Dates: start: 20091201, end: 20100803
  3. VALIUM [Concomitant]
     Indication: PAIN
     Dosage: 20-40 MG AT NIGHT

REACTIONS (14)
  - APPARENT DEATH [None]
  - ARRHYTHMIA [None]
  - AUTOMATIC BLADDER [None]
  - CALCULUS BLADDER [None]
  - CARDIAC DISORDER [None]
  - CONDITION AGGRAVATED [None]
  - DRUG INEFFECTIVE FOR UNAPPROVED INDICATION [None]
  - DRUG WITHDRAWAL SYNDROME [None]
  - ELECTROCARDIOGRAM QT PROLONGED [None]
  - FATIGUE [None]
  - INSOMNIA [None]
  - LOSS OF CONSCIOUSNESS [None]
  - MIDDLE INSOMNIA [None]
  - NEAR DROWNING [None]
